FAERS Safety Report 16837705 (Version 1)
Quarter: 2019Q3

REPORT INFORMATION
  Report Type: Spontaneous
  Country: IT (occurrence: IT)
  Receive Date: 20190923
  Receipt Date: 20190923
  Transmission Date: 20191005
  Serious: Yes (Other)
  Sender: FDA-Public Use
  Company Number: IT-AMGEN-ITASP2019151667

PATIENT
  Age: 68 Year
  Sex: Male

DRUGS (1)
  1. AMGEVITA [Suspect]
     Active Substance: ADALIMUMAB
     Indication: PSORIASIS
     Dosage: 40 MILLIGRAM, CYCLICAL
     Route: 058
     Dates: start: 20190627

REACTIONS (3)
  - Skin reaction [Unknown]
  - Pruritus generalised [Unknown]
  - Psoriasis [Unknown]

NARRATIVE: CASE EVENT DATE: 20190822
